FAERS Safety Report 9717518 (Version 2)
Quarter: 2015Q3

REPORT INFORMATION
  Report Type: Spontaneous
  Country: US (occurrence: US)
  Receive Date: 20131127
  Receipt Date: 20150803
  Transmission Date: 20151125
  Serious: No
  Sender: FDA-Public Use
  Company Number: US-GILEAD-2009-0020544

PATIENT
  Age: 74 Year
  Sex: Female

DRUGS (11)
  1. COUMADIN [Concomitant]
     Active Substance: WARFARIN SODIUM
  2. ADVAIR DISC [Concomitant]
  3. IPRATROPIUM SOL ABUTEROL [Concomitant]
  4. SPIRIVA CAP HANDIHLD [Concomitant]
  5. SYNTHROID [Concomitant]
     Active Substance: LEVOTHYROXINE SODIUM
  6. LASIX [Concomitant]
     Active Substance: FUROSEMIDE
  7. IRON [Concomitant]
     Active Substance: IRON
  8. NEXIUM [Concomitant]
     Active Substance: ESOMEPRAZOLE MAGNESIUM
  9. LETAIRIS [Suspect]
     Active Substance: AMBRISENTAN
     Indication: PULMONARY ARTERIAL HYPERTENSION
     Route: 048
     Dates: start: 20080520
  10. K-DUR [Concomitant]
     Active Substance: POTASSIUM CHLORIDE
  11. TRIMETHORPRIM [Concomitant]

REACTIONS (1)
  - Haemoglobin decreased [Not Recovered/Not Resolved]
